FAERS Safety Report 15010007 (Version 1)
Quarter: 2018Q2

REPORT INFORMATION
  Report Type: Spontaneous
  Country: US (occurrence: US)
  Receive Date: 20180614
  Receipt Date: 20180614
  Transmission Date: 20180711
  Serious: No
  Sender: FDA-Public Use
  Company Number: US-PFIZER INC-2018242484

PATIENT
  Age: 69 Year
  Sex: Female

DRUGS (5)
  1. ENBREL [Suspect]
     Active Substance: ETANERCEPT
     Indication: RHEUMATOID ARTHRITIS
     Dosage: 50 MG, QWK
     Route: 065
     Dates: start: 201803
  2. METHOTREXATE. [Suspect]
     Active Substance: METHOTREXATE
     Dosage: 4 PILLS, QWK
     Route: 065
     Dates: start: 2018
  3. METHOTREXATE. [Suspect]
     Active Substance: METHOTREXATE
     Dosage: 7 PILLS, QWK
     Route: 065
     Dates: start: 2018, end: 2018
  4. METHOTREXATE. [Suspect]
     Active Substance: METHOTREXATE
     Dosage: 2.5 MG 10 PILLS, QWK
     Route: 065
  5. FOLIC ACID. [Concomitant]
     Active Substance: FOLIC ACID
     Dosage: UNK 2 PILLS, QD

REACTIONS (19)
  - Abdominal pain [Unknown]
  - Drug dose omission [Unknown]
  - Arthropathy [Unknown]
  - Musculoskeletal disorder [Unknown]
  - Mouth injury [Unknown]
  - Muscle spasms [Not Recovered/Not Resolved]
  - Muscle tightness [Unknown]
  - Mouth haemorrhage [Unknown]
  - Back injury [Not Recovered/Not Resolved]
  - Lip pain [Not Recovered/Not Resolved]
  - Dyskinesia [Unknown]
  - Wrong technique in product usage process [Unknown]
  - Hepatic enzyme increased [Unknown]
  - Fall [Unknown]
  - Back pain [Not Recovered/Not Resolved]
  - Drug ineffective [Unknown]
  - Fatigue [Not Recovered/Not Resolved]
  - Pain in extremity [Not Recovered/Not Resolved]
  - Swelling [Unknown]

NARRATIVE: CASE EVENT DATE: 2018
